FAERS Safety Report 10082943 (Version 1)
Quarter: 2014Q2

REPORT INFORMATION
  Report Type: Spontaneous
  Country: FR (occurrence: FR)
  Receive Date: 20140417
  Receipt Date: 20140417
  Transmission Date: 20141212
  Serious: Yes (Life-Threatening, Hospitalization)
  Sender: FDA-Public Use
  Company Number: FR-ROCHE-1381175

PATIENT
  Age: 52 Year
  Sex: Female

DRUGS (1)
  1. ROCEPHINE [Suspect]
     Indication: ERYSIPELAS
     Route: 042
     Dates: start: 20130514, end: 20130514

REACTIONS (2)
  - Anaphylactic shock [Recovered/Resolved]
  - Cardio-respiratory arrest [Recovered/Resolved]
